FAERS Safety Report 9348250 (Version 2)
Quarter: 2013Q4

REPORT INFORMATION
  Report Type: Spontaneous
  Country: BR (occurrence: BR)
  Receive Date: 20130614
  Receipt Date: 20131021
  Transmission Date: 20140711
  Serious: Yes (Hospitalization, Other)
  Sender: FDA-Public Use
  Company Number: BR-PFIZER INC-2013177985

PATIENT
  Age: 60 Year
  Sex: Female
  Weight: 56 kg

DRUGS (16)
  1. ATENOLOL [Suspect]
     Indication: ARRHYTHMIA
     Dosage: 25 MG, 2X/DAY
     Route: 048
     Dates: end: 201306
  2. ATENOLOL [Suspect]
     Indication: AMERICAN TRYPANOSOMIASIS
  3. ATENOLOL [Suspect]
     Indication: HYPERTENSION
  4. OMEPRAZOLE [Suspect]
     Indication: GASTROOESOPHAGEAL REFLUX DISEASE
     Dosage: 20 MG, DAILY
     Route: 048
     Dates: end: 201308
  5. SELOZOK [Suspect]
     Indication: HYPERTENSION
     Dosage: 50 MG, 2X/DAY
     Route: 048
     Dates: start: 201306, end: 201308
  6. SELOZOK [Suspect]
     Indication: ARRHYTHMIA
     Dosage: 50 MG, UNK
  7. SELOZOK [Suspect]
     Indication: AMERICAN TRYPANOSOMIASIS
  8. LOPIGREL [Suspect]
     Indication: ANTICOAGULANT THERAPY
     Dosage: UNK
     Route: 048
     Dates: end: 201308
  9. OLANZAPINE [Concomitant]
     Indication: DEPRESSION
     Dosage: UNK
     Route: 065
  10. SERTRALINE [Concomitant]
     Indication: DEPRESSION
     Dosage: UNK
     Route: 065
  11. DIAZEPAM [Concomitant]
     Indication: DEPRESSION
     Dosage: UNK
     Route: 065
  12. BENICAR [Concomitant]
     Indication: HYPERTENSION
     Dosage: UNK
     Dates: start: 201208, end: 201308
  13. BENICAR [Concomitant]
     Indication: ARRHYTHMIA
  14. BENICAR [Concomitant]
     Indication: AMERICAN TRYPANOSOMIASIS
  15. COVERSYL [Concomitant]
     Indication: GASTROOESOPHAGEAL REFLUX DISEASE
     Dosage: UNK
     Route: 065
     Dates: start: 201306
  16. ZIPROL [Concomitant]
     Indication: GASTROOESOPHAGEAL REFLUX DISEASE
     Dosage: UNK
     Route: 065
     Dates: start: 201308

REACTIONS (5)
  - Hypertension [Recovered/Resolved]
  - Intestinal obstruction [Recovered/Resolved]
  - Haematoma [Recovered/Resolved]
  - Hypotension [Recovered/Resolved]
  - Off label use [Recovered/Resolved]
